FAERS Safety Report 8153801-0 (Version None)
Quarter: 2012Q1

REPORT INFORMATION
  Report Type: 
  Country: None (occurrence: None)
  Receive Date: 20120221
  Receipt Date: 20120214
  Transmission Date: 20120608
  Serious: Yes (Other)
  Sender: FDA-Public Use
  Company Number: JP-GLAXOSMITHKLINE-B0782253A

PATIENT
  Age: 76 Year
  Sex: Female
  Weight: 72 kg

DRUGS (19)
  1. ADONA (AC-17) [Concomitant]
     Dosage: 90MG PER DAY
     Route: 048
  2. NATEGLINIDE [Concomitant]
     Dosage: 180MG PER DAY
     Route: 048
  3. ALOSENN [Concomitant]
     Dosage: 1G PER DAY
     Route: 048
  4. HUMALOG [Concomitant]
     Dosage: 12IU PER DAY
     Route: 058
  5. DIAMOX SRC [Suspect]
     Indication: PRODUCT USED FOR UNKNOWN INDICATION
     Dosage: 250MG PER DAY
     Route: 048
  6. FUROSEMIDE [Concomitant]
     Dosage: 20MG PER DAY
     Route: 048
  7. MICARDIS [Concomitant]
     Dosage: 40MG PER DAY
     Route: 048
  8. CIRCULETIN [Concomitant]
     Dosage: 75MG PER DAY
     Route: 048
  9. LIVALO [Concomitant]
     Dosage: 2MG PER DAY
     Route: 048
  10. GABAPENTIN [Concomitant]
     Dosage: 400MG PER DAY
     Route: 048
  11. POTASSIUM CHLORIDE [Concomitant]
     Dosage: 330MG PER DAY
     Route: 048
  12. ASPARA-CA [Concomitant]
     Dosage: 1200MG PER DAY
     Route: 048
  13. ALFAROL [Concomitant]
     Dosage: 1MCG PER DAY
     Route: 048
  14. UNKNOWN DRUG [Concomitant]
     Dosage: 1500MG PER DAY
     Route: 048
  15. LANTUS [Concomitant]
     Dosage: 34IU PER DAY
     Route: 058
  16. VALTREX [Suspect]
     Indication: HERPES ZOSTER
     Dosage: 3000MG PER DAY
     Route: 048
     Dates: start: 20120117, end: 20120122
  17. LANSOPRAZOLE [Concomitant]
     Dosage: 15MG PER DAY
     Route: 048
  18. ALENDRONATE SODIUM [Concomitant]
  19. EPADEL [Concomitant]
     Dosage: 1800MG PER DAY
     Route: 048

REACTIONS (5)
  - URINE OUTPUT DECREASED [None]
  - BLOOD CREATININE INCREASED [None]
  - MUSCULAR WEAKNESS [None]
  - RENAL IMPAIRMENT [None]
  - ALTERED STATE OF CONSCIOUSNESS [None]
